FAERS Safety Report 7643822-6 (Version None)
Quarter: 2011Q3

REPORT INFORMATION
  Report Type: 
  Country: None (occurrence: None)
  Receive Date: 20110729
  Receipt Date: 20110722
  Transmission Date: 20111222
  Serious: Yes (Hospitalization)
  Sender: FDA-Public Use
  Company Number: DE-GENZYME-CAMP-1001646

PATIENT
  Age: 60 Year
  Sex: Female

DRUGS (9)
  1. CYCLOPHOSPHAMIDE [Suspect]
     Indication: NON-HODGKIN'S LYMPHOMA
     Dosage: 1270.6 MG, ONCE
     Route: 042
     Dates: start: 20090115, end: 20090115
  2. VINCRISTINE [Suspect]
     Indication: NON-HODGKIN'S LYMPHOMA
     Dosage: 2 MG, ONCE
     Route: 042
     Dates: start: 20081231, end: 20081231
  3. PREDNISONE [Suspect]
     Indication: NON-HODGKIN'S LYMPHOMA
     Dosage: 100 MG, QDX5
     Route: 048
     Dates: start: 20090115, end: 20090119
  4. AMPHOTERICIN B [Suspect]
     Indication: ORAL CANDIDIASIS
  5. DOXORUBICIN HCL [Suspect]
     Indication: NON-HODGKIN'S LYMPHOMA
     Dosage: 81.8 MG, ONCE
     Route: 042
     Dates: start: 20090115, end: 20090115
  6. CAMPATH [Suspect]
     Dosage: 30 MG, ONCE
     Route: 058
     Dates: start: 20090115, end: 20090115
  7. CAMPATH [Suspect]
     Dosage: 30 MG, ONCE
     Route: 058
  8. CAMPATH [Suspect]
     Indication: NON-HODGKIN'S LYMPHOMA
     Dosage: 30 MG, ONCE
     Route: 058
     Dates: start: 20081112
  9. FILGRASTIM [Suspect]
     Indication: NON-HODGKIN'S LYMPHOMA
     Dosage: 300 MCG, QOD ON DAYS 4-12
     Route: 058
     Dates: start: 20090113, end: 20090127

REACTIONS (3)
  - CHOLECYSTITIS ACUTE [None]
  - CHOLELITHIASIS [None]
  - GENERAL PHYSICAL HEALTH DETERIORATION [None]
